FAERS Safety Report 4895417-5 (Version None)
Quarter: 2006Q1

REPORT INFORMATION
  Report Type: 
  Country: None (occurrence: None)
  Receive Date: 20060130
  Receipt Date: 20050912
  Transmission Date: 20060701
  Serious: No
  Sender: FDA-Public Use
  Company Number: US-GLAXOSMITHKLINE-A0577263A

PATIENT
  Age: 35 Year
  Sex: Male
  Weight: 73.6 kg

DRUGS (1)
  1. COMBIVIR [Suspect]
     Indication: HIV INFECTION
     Route: 048
     Dates: start: 20050517, end: 20050602

REACTIONS (1)
  - SKIN DISCOLOURATION [None]
